FAERS Safety Report 16885971 (Version 1)
Quarter: 2019Q4

REPORT INFORMATION
  Report Type: Spontaneous
  Country: IT (occurrence: IT)
  Receive Date: 20191004
  Receipt Date: 20191004
  Transmission Date: 20200122
  Serious: Yes (Hospitalization, Other)
  Sender: FDA-Public Use
  Company Number: IT-SA-2019SA271495

PATIENT
  Age: 66 Year
  Sex: Male

DRUGS (1)
  1. ZOLPIDEM TARTRATE. [Suspect]
     Active Substance: ZOLPIDEM TARTRATE
     Dosage: 30 ML, TOTAL
     Route: 048

REACTIONS (3)
  - Substance abuse [Unknown]
  - Overdose [Unknown]
  - Sopor [Unknown]

NARRATIVE: CASE EVENT DATE: 20190408
